FAERS Safety Report 15209125 (Version 2)
Quarter: 2018Q3

REPORT INFORMATION
  Report Type: Report from Study
  Country: BG (occurrence: BG)
  Receive Date: 20180727
  Receipt Date: 20180807
  Transmission Date: 20181010
  Serious: Yes (Other)
  Sender: FDA-Public Use
  Company Number: BG-BAYER-2018-111636

PATIENT
  Age: 74 Year
  Sex: Male

DRUGS (5)
  1. NEXAVAR [Suspect]
     Active Substance: SORAFENIB
     Indication: RENAL CELL CARCINOMA
     Dosage: 200 MG, BID
     Route: 048
     Dates: start: 20180618, end: 20180718
  2. RAMIPRIL/AMLODIPINE [Concomitant]
  3. RAMIPRIL/AMLODIPINE [Concomitant]
     Dosage: DAILY DOSE 5 MG
  4. NEXAVAR [Suspect]
     Active Substance: SORAFENIB
     Indication: RENAL CELL CARCINOMA
     Dosage: 800 MG
     Route: 048
     Dates: start: 20180528, end: 20180611
  5. FURANTRIL [Concomitant]

REACTIONS (19)
  - Dermatitis allergic [Recovered/Resolved]
  - Pruritus [Recovered/Resolved]
  - Pyrexia [Recovered/Resolved]
  - Fluid intake reduced [Recovering/Resolving]
  - Anaemia [Recovered/Resolved]
  - Diarrhoea [Recovered/Resolved]
  - Joint swelling [Recovering/Resolving]
  - Musculoskeletal disorder [Recovering/Resolving]
  - Eating disorder [Recovering/Resolving]
  - Arthralgia [Recovered/Resolved]
  - Erythema [Recovering/Resolving]
  - Frequent bowel movements [Recovered/Resolved]
  - Decreased appetite [Recovering/Resolving]
  - Food refusal [Recovering/Resolving]
  - Hypertension [Recovered/Resolved]
  - Asthenia [Recovered/Resolved]
  - Arthralgia [Recovering/Resolving]
  - Haemoglobin decreased [Recovering/Resolving]
  - Asthenia [Recovering/Resolving]

NARRATIVE: CASE EVENT DATE: 20180605
